FAERS Safety Report 17825705 (Version 1)
Quarter: 2020Q2

REPORT INFORMATION
  Report Type: Report from Study
  Country: None (occurrence: TW)
  Receive Date: 20200526
  Receipt Date: 20200526
  Transmission Date: 20200714
  Serious: Yes (Death, Hospitalization)
  Sender: FDA-Public Use
  Company Number: TW-ABBVIE-20K-153-3418406-00

PATIENT
  Age: 72 Year
  Sex: Male
  Weight: 75 kg

DRUGS (2)
  1. HUMIRA [Suspect]
     Active Substance: ADALIMUMAB
     Indication: RHEUMATOID ARTHRITIS
     Route: 058
     Dates: start: 20180202, end: 20200423
  2. HUMIRA [Suspect]
     Active Substance: ADALIMUMAB
     Indication: RHEUMATOID ARTHRITIS
     Route: 058
     Dates: start: 20110419, end: 20171229

REACTIONS (5)
  - Shock [Fatal]
  - End stage renal disease [Fatal]
  - Coronary artery disease [Fatal]
  - Peripheral arterial occlusive disease [Fatal]
  - Azotaemia [Fatal]

NARRATIVE: CASE EVENT DATE: 20200424
